FAERS Safety Report 5211892-0 (Version None)
Quarter: 2006Q4

REPORT INFORMATION
  Report Type: 
  Country: None (occurrence: None)
  Receive Date: 20061101
  Receipt Date: 20060807
  Transmission Date: 20070319
  Serious: No
  Sender: FDA-Public Use
  Company Number: 2006PV018989

PATIENT
  Age: 52 Year
  Sex: Male

DRUGS (1)
  1. SYMLIN [Suspect]
     Indication: DIABETES MELLITUS NON-INSULIN-DEPENDENT
     Dosage: SEE IMAGE
     Route: 058
     Dates: start: 20051001

REACTIONS (3)
  - INJECTION SITE BRUISING [None]
  - INJECTION SITE INDURATION [None]
  - INJECTION SITE PAIN [None]
